FAERS Safety Report 7419544-3 (Version None)
Quarter: 2011Q1

REPORT INFORMATION
  Report Type: 
  Country: None (occurrence: None)
  Receive Date: 20110302
  Receipt Date: 20101105
  Transmission Date: 20110831
  Serious: No
  Sender: FDA-Public Use
  Company Number: 021616

PATIENT
  Sex: Female
  Weight: 75 kg

DRUGS (3)
  1. CIMZIA [Suspect]
     Indication: CROHN'S DISEASE
     Dosage: TWO SHOTS EVERY TWO WEEKS SUBCUTANEOUS
     Route: 058
     Dates: start: 20100923
  2. REGLAN [Concomitant]
  3. PENTASA [Concomitant]

REACTIONS (3)
  - COUGH [None]
  - INJECTION SITE RASH [None]
  - INJECTION SITE SWELLING [None]
